FAERS Safety Report 5661439-X (Version None)
Quarter: 2008Q1

REPORT INFORMATION
  Report Type: 
  Country: None (occurrence: None)
  Receive Date: 20080311
  Receipt Date: 20080228
  Transmission Date: 20080703
  Serious: Yes (Other)
  Sender: FDA-Public Use
  Company Number: US-PFIZER INC-2008021013

PATIENT
  Sex: Female
  Weight: 97.1 kg

DRUGS (4)
  1. LYRICA [Suspect]
     Indication: FIBROMYALGIA
  2. CLONAZEPAM [Concomitant]
  3. MORPHINE [Concomitant]
  4. OXYCODONE HCL [Concomitant]

REACTIONS (2)
  - COORDINATION ABNORMAL [None]
  - SOMNOLENCE [None]
